FAERS Safety Report 18366805 (Version 2)
Quarter: 2020Q4

REPORT INFORMATION
  Report Type: Spontaneous
  Country: US (occurrence: US)
  Receive Date: 20201009
  Receipt Date: 20201027
  Transmission Date: 20210114
  Serious: Yes (Hospitalization, Disabling, Other)
  Sender: FDA-Public Use
  Company Number: US-PURDUE-USA-2020-0169047

PATIENT
  Sex: Male

DRUGS (4)
  1. HEROIN [Suspect]
     Active Substance: DIAMORPHINE
     Indication: PRODUCT USED FOR UNKNOWN INDICATION
     Route: 065
  2. DILAUDID [Suspect]
     Active Substance: HYDROMORPHONE HYDROCHLORIDE
     Indication: PAIN
     Route: 048
  3. OXYCONTIN [Suspect]
     Active Substance: OXYCODONE HYDROCHLORIDE
     Indication: PAIN
     Route: 048
  4. HYDROMORPHONE TABLETS [Suspect]
     Active Substance: HYDROMORPHONE
     Indication: PAIN
     Route: 048

REACTIONS (20)
  - Drug abuse [Unknown]
  - Brain injury [Unknown]
  - Gun shot wound [Unknown]
  - Pain [Unknown]
  - Tremor [Unknown]
  - Malaise [Unknown]
  - Drug tolerance [Unknown]
  - Drug dependence [Unknown]
  - Mental disorder [Unknown]
  - Loss of consciousness [Unknown]
  - Influenza [Unknown]
  - Depression [Unknown]
  - Insomnia [Unknown]
  - Knee arthroplasty [Unknown]
  - Drug withdrawal syndrome [Unknown]
  - Stupor [Unknown]
  - Rheumatoid arthritis [Unknown]
  - General physical health deterioration [Unknown]
  - Overdose [Unknown]
  - Disability [Unknown]
